FAERS Safety Report 24279866 (Version 1)
Quarter: 2024Q3

REPORT INFORMATION
  Report Type: Spontaneous
  Country: US (occurrence: US)
  Receive Date: 20240904
  Receipt Date: 20240904
  Transmission Date: 20241016
  Serious: No
  Sender: TARO
  Company Number: US-TARO PHARMACEUTICALS USA INC.-2024TAR00374

PATIENT
  Sex: Male

DRUGS (1)
  1. CLOBETASOL PROPIONATE [Suspect]
     Active Substance: CLOBETASOL PROPIONATE
     Indication: Eczema
     Dosage: APPLY TO AFFECTED AREA FOR 5-6 DAYS, TOPICAL TO EYELIDS
     Route: 061

REACTIONS (3)
  - Skin wound [Not Recovered/Not Resolved]
  - Off label use [Unknown]
  - Eye irritation [Not Recovered/Not Resolved]
